FAERS Safety Report 17261587 (Version 1)
Quarter: 2020Q1

REPORT INFORMATION
  Report Type: Spontaneous
  Country: US (occurrence: US)
  Receive Date: 20200113
  Receipt Date: 20200113
  Transmission Date: 20200409
  Serious: No
  Sender: FDA-Public Use
  Company Number: US-TEVA-2020-US-1165534

PATIENT
  Sex: Male

DRUGS (1)
  1. CLONAZEPAM TEVA [Suspect]
     Active Substance: CLONAZEPAM
     Dosage: 2 AND 1/4 MG TABLET
     Route: 065

REACTIONS (6)
  - Abdominal discomfort [Unknown]
  - Anxiety [Unknown]
  - Therapeutic product effect decreased [Unknown]
  - Suspected product quality issue [Unknown]
  - Wrong technique in product usage process [Unknown]
  - Product substitution issue [Unknown]
